FAERS Safety Report 7051166-9 (Version None)
Quarter: 2010Q4

REPORT INFORMATION
  Report Type: 
  Country: None (occurrence: None)
  Receive Date: 20101019
  Receipt Date: 20101004
  Transmission Date: 20110411
  Serious: Yes (Hospitalization, Other)
  Sender: FDA-Public Use
  Company Number: PHHY2010US61019

PATIENT
  Sex: Male
  Weight: 77 kg

DRUGS (3)
  1. EXJADE [Suspect]
     Indication: HEPATIC NEOPLASM MALIGNANT
     Dosage: 1375 MG/DAY
     Route: 048
     Dates: start: 20100726
  2. EXJADE [Suspect]
     Dosage: UNK
     Dates: start: 20100815, end: 20100825
  3. DIURETICS [Concomitant]
     Dosage: UNK

REACTIONS (10)
  - ABDOMINAL CAVITY DRAINAGE [None]
  - CONFUSIONAL STATE [None]
  - DEHYDRATION [None]
  - HEPATIC FAILURE [None]
  - HIP FRACTURE [None]
  - LETHARGY [None]
  - OEDEMA [None]
  - RENAL DISORDER [None]
  - RENAL FAILURE [None]
  - URINE OUTPUT DECREASED [None]
